FAERS Safety Report 14153968 (Version 2)
Quarter: 2017Q4

REPORT INFORMATION
  Report Type: Spontaneous
  Country: SE (occurrence: SE)
  Receive Date: 20171102
  Receipt Date: 20171106
  Transmission Date: 20180321
  Serious: Yes (Death)
  Sender: FDA-Public Use
  Company Number: SE-ASTRAZENECA-2017SF10907

PATIENT
  Age: 74 Year
  Sex: Female

DRUGS (15)
  1. FORXIGA [Suspect]
     Active Substance: DAPAGLIFLOZIN
     Indication: DIABETES MELLITUS
     Route: 048
     Dates: start: 20160307, end: 20170831
  2. CARVEDILOL. [Concomitant]
     Active Substance: CARVEDILOL
  3. PEVISONE [Concomitant]
     Active Substance: ECONAZOLE
     Dates: start: 20170903
  4. HUMALOG [Concomitant]
     Active Substance: INSULIN LISPRO
     Dates: start: 20170913
  5. PANTOPRAZOLE [Concomitant]
     Active Substance: PANTOPRAZOLE
     Dates: start: 20170901
  6. AMLODIPINE [Concomitant]
     Active Substance: AMLODIPINE BESYLATE
  7. INSULIN GLARGINE [Concomitant]
     Active Substance: INSULIN GLARGINE
     Dates: start: 20170913
  8. FURIX [Concomitant]
     Active Substance: FUROSEMIDE
     Dosage: 10 MG/ML
     Dates: start: 20170902
  9. IMDUR [Concomitant]
     Active Substance: ISOSORBIDE MONONITRATE
  10. OXYCONTIN [Concomitant]
     Active Substance: OXYCODONE HYDROCHLORIDE
     Dates: start: 20170901
  11. INNOHEP [Concomitant]
     Active Substance: TINZAPARIN SODIUM
     Dates: start: 20170907
  12. ACETYLCYSTEINE. [Concomitant]
     Active Substance: ACETYLCYSTEINE
  13. SPIRONOLACTONE. [Concomitant]
     Active Substance: SPIRONOLACTONE
     Dates: start: 20170218
  14. CILAXORAL [Concomitant]
     Active Substance: SODIUM PICOSULFATE
  15. METOLAZONE. [Concomitant]
     Active Substance: METOLAZONE
     Dates: start: 20170601

REACTIONS (1)
  - Candida sepsis [Fatal]

NARRATIVE: CASE EVENT DATE: 20170831
